FAERS Safety Report 5489872-X (Version None)
Quarter: 2007Q4

REPORT INFORMATION
  Report Type: 
  Country: None (occurrence: None)
  Receive Date: 20071018
  Receipt Date: 20071012
  Transmission Date: 20080405
  Serious: Yes (Other)
  Sender: FDA-Public Use
  Company Number: CA-ASTRAZENECA-2007UW23939

PATIENT
  Age: 49 Year
  Sex: Female

DRUGS (3)
  1. SEROQUEL [Suspect]
     Route: 048
  2. VASOTEC [Concomitant]
     Route: 048
  3. VALPROIC ACID [Concomitant]

REACTIONS (15)
  - ANXIETY [None]
  - CONFUSIONAL STATE [None]
  - DIARRHOEA [None]
  - DISORIENTATION [None]
  - DISTURBANCE IN ATTENTION [None]
  - DRUG WITHDRAWAL SYNDROME [None]
  - EAR DISORDER [None]
  - INSOMNIA [None]
  - MIGRAINE [None]
  - PERSONALITY DISORDER [None]
  - PHARYNGOLARYNGEAL PAIN [None]
  - STOMACH DISCOMFORT [None]
  - THINKING ABNORMAL [None]
  - THROAT TIGHTNESS [None]
  - VISUAL DISTURBANCE [None]
